FAERS Safety Report 6368992-1 (Version None)
Quarter: 2009Q3

REPORT INFORMATION
  Report Type: 
  Country: None (occurrence: None)
  Receive Date: 20090918
  Receipt Date: 20090918
  Transmission Date: 20100115
  Serious: Yes (Life-Threatening)
  Sender: FDA-Public Use
  Company Number: None

PATIENT
  Age: 68 Year
  Sex: Male
  Weight: 83.0083 kg

DRUGS (1)
  1. LISINOPRIL [Suspect]

REACTIONS (5)
  - ASTHENIA [None]
  - CHEST PAIN [None]
  - DYSSTASIA [None]
  - PRESYNCOPE [None]
  - VISUAL IMPAIRMENT [None]
